FAERS Safety Report 4649274-2 (Version None)
Quarter: 2005Q2

REPORT INFORMATION
  Report Type: 
  Country: None (occurrence: None)
  Receive Date: 20050429
  Receipt Date: 20050131
  Transmission Date: 20051028
  Serious: Yes (Hospitalization)
  Sender: FDA-Public Use
  Company Number: US-MERCK-0502USA00076

PATIENT
  Age: 48 Year
  Sex: Male
  Weight: 100 kg

DRUGS (8)
  1. VIOXX [Suspect]
     Indication: BACK PAIN
     Route: 048
     Dates: start: 19990101, end: 20011229
  2. VIOXX [Suspect]
     Indication: ARTHRITIS
     Route: 048
     Dates: start: 19990101, end: 20011229
  3. MAXZIDE [Concomitant]
     Indication: HYPERTENSION
     Route: 065
     Dates: start: 19960101
  4. MAXZIDE [Concomitant]
     Indication: FLUID RETENTION
     Route: 065
     Dates: start: 19960101
  5. ACCUPRIL [Concomitant]
     Indication: HYPERTENSION
     Route: 065
     Dates: start: 20010101
  6. TOPROL-XL [Concomitant]
     Indication: CARDIAC DISORDER
     Route: 065
  7. ASPIRIN [Concomitant]
     Route: 065
  8. LIPITOR [Concomitant]
     Route: 065
     Dates: start: 19960201

REACTIONS (10)
  - ACUTE MYOCARDIAL INFARCTION [None]
  - ANGINA UNSTABLE [None]
  - BLOOD ALKALINE PHOSPHATASE INCREASED [None]
  - CARDIOMEGALY [None]
  - CORONARY ARTERY DISEASE [None]
  - DEPRESSION [None]
  - DYSPEPSIA [None]
  - HEART RATE IRREGULAR [None]
  - LEUKOCYTOSIS [None]
  - MYOCARDIAL INFARCTION [None]
